FAERS Safety Report 16282201 (Version 2)
Quarter: 2019Q2

REPORT INFORMATION
  Report Type: Spontaneous
  Country: US (occurrence: US)
  Receive Date: 20190507
  Receipt Date: 20190614
  Transmission Date: 20190711
  Serious: No
  Sender: FDA-Public Use
  Company Number: US-ASTRAZENECA-2019SE56527

PATIENT
  Age: 832 Month
  Sex: Female
  Weight: 31.8 kg

DRUGS (4)
  1. SYMBICORT [Suspect]
     Active Substance: BUDESONIDE\FORMOTEROL FUMARATE DIHYDRATE
     Indication: CHRONIC OBSTRUCTIVE PULMONARY DISEASE
     Dosage: 160/4.5MCG, 2 PUFFS TWICE A DAY
     Route: 055
     Dates: start: 2017
  2. ATROVENT [Concomitant]
     Active Substance: IPRATROPIUM BROMIDE
     Indication: DYSPNOEA
     Route: 055
  3. TRAMADOL. [Concomitant]
     Active Substance: TRAMADOL
     Indication: PAIN
  4. VENTOLIN [Concomitant]
     Active Substance: ALBUTEROL SULFATE
     Indication: DYSPNOEA
     Route: 055

REACTIONS (10)
  - Intentional product misuse [Unknown]
  - Wrong technique in product usage process [Unknown]
  - Pain [Unknown]
  - Dyspnoea [Unknown]
  - Pain in extremity [Unknown]
  - Contusion [Unknown]
  - Condition aggravated [Unknown]
  - Device issue [Unknown]
  - Gait disturbance [Unknown]
  - Device malfunction [Unknown]

NARRATIVE: CASE EVENT DATE: 201903
